FAERS Safety Report 7496986-1 (Version None)
Quarter: 2011Q2

REPORT INFORMATION
  Report Type: 
  Country: None (occurrence: None)
  Receive Date: 20110523
  Receipt Date: 20110520
  Transmission Date: 20111010
  Serious: Yes (Hospitalization, Other)
  Sender: FDA-Public Use
  Company Number: DE-ABBOTT-11P-062-0700042-00

PATIENT
  Sex: Female
  Weight: 56.8 kg

DRUGS (7)
  1. HUMIRA [Suspect]
     Indication: PSORIASIS
     Route: 058
     Dates: start: 20090318, end: 20110106
  2. TORSEMIDE [Concomitant]
     Indication: HYPERTENSION
     Route: 048
  3. AMLODIPINE BESYLATE AND OLMESARTAN MEDOXOMIL [Suspect]
     Indication: PRODUCT USED FOR UNKNOWN INDICATION
     Dosage: 40/10 MG
  4. LERCANIDIPINE [Concomitant]
     Indication: HYPERTENSION
     Route: 048
  5. NIFEDIPINE [Concomitant]
     Indication: HYPERTENSION
     Route: 048
  6. DIURETICS [Concomitant]
     Indication: PRODUCT USED FOR UNKNOWN INDICATION
  7. HUMIRA [Suspect]
     Dates: start: 20110303

REACTIONS (5)
  - HEADACHE [None]
  - HOT FLUSH [None]
  - HYPERTENSION [None]
  - DIZZINESS [None]
  - VENTRICULAR EXTRASYSTOLES [None]
